FAERS Safety Report 9848946 (Version 1)
Quarter: 2014Q1

REPORT INFORMATION
  Report Type: Spontaneous
  Country: IT (occurrence: IT)
  Receive Date: 20140128
  Receipt Date: 20140128
  Transmission Date: 20141002
  Serious: Yes (Other)
  Sender: FDA-Public Use
  Company Number: IT-MYLANLABS-2014S1001170

PATIENT
  Age: 83 Year
  Sex: Male
  Weight: 0 kg

DRUGS (4)
  1. ALFUZOSIN HYDROCHLORIDE [Suspect]
     Indication: BENIGN PROSTATIC HYPERPLASIA
     Dosage: 10 MG DAILY
     Route: 048
     Dates: start: 20131124, end: 20131203
  2. ALFUZOSIN HYDROCHLORIDE [Suspect]
     Dosage: 10 MG DAILY
     Route: 048
     Dates: start: 20131124, end: 20131203
  3. TORVAST [Concomitant]
     Indication: DYSLIPIDAEMIA
  4. PERINDOPRIL [Concomitant]
     Indication: PRODUCT USED FOR UNKNOWN INDICATION

REACTIONS (3)
  - Asthenia [Not Recovered/Not Resolved]
  - Syncope [Not Recovered/Not Resolved]
  - Vertigo [Not Recovered/Not Resolved]
